FAERS Safety Report 19402604 (Version 1)
Quarter: 2021Q2

REPORT INFORMATION
  Report Type: Spontaneous
  Country: GB (occurrence: GB)
  Receive Date: 20210610
  Receipt Date: 20210610
  Transmission Date: 20210717
  Serious: Yes (Other)
  Sender: FDA-Public Use
  Company Number: GB-PFIZER INC-2021622400

PATIENT
  Sex: Male

DRUGS (1)
  1. CHAMPIX [Suspect]
     Active Substance: VARENICLINE TARTRATE
     Indication: TOBACCO USER
     Dosage: 1 MG

REACTIONS (2)
  - Amnesia [Recovered/Resolved with Sequelae]
  - Urinary tract infection [Recovered/Resolved]
